FAERS Safety Report 5019529-0 (Version None)
Quarter: 2006Q2

REPORT INFORMATION
  Report Type: 
  Country: None (occurrence: None)
  Receive Date: 20060530
  Receipt Date: 20060512
  Transmission Date: 20061013
  Serious: Yes (Other)
  Sender: FDA-Public Use
  Company Number: DSA_28227_2006

PATIENT
  Age: 53 Year
  Sex: Male

DRUGS (5)
  1. DILTIAZEM [Suspect]
     Indication: ANAL FISSURE
     Dosage: DF Q DAY RC
     Route: 054
     Dates: start: 20060314, end: 20060324
  2. LOSEC [Concomitant]
  3. NICOTINE [Concomitant]
  4. SIMVASTATIN [Concomitant]
  5. COVERSYL PLUS [Concomitant]

REACTIONS (4)
  - DRUG INTERACTION [None]
  - PANIC ATTACK [None]
  - SYNCOPE [None]
  - TACHYCARDIA [None]
